FAERS Safety Report 4799770-2 (Version None)
Quarter: 2005Q4

REPORT INFORMATION
  Report Type: 
  Country: None (occurrence: None)
  Receive Date: 20051012
  Receipt Date: 20051012
  Transmission Date: 20060501
  Serious: Yes (Hospitalization)
  Sender: FDA-Public Use
  Company Number: None

PATIENT
  Sex: Female
  Weight: 68.0396 kg

DRUGS (7)
  1. PREVACID [Suspect]
     Indication: HELICOBACTER INFECTION
     Dosage: PO (THERAPY DATES: PRIOR TO ADMISSION)
     Route: 048
  2. FLAGYL [Suspect]
     Indication: HELICOBACTER INFECTION
     Dosage: PO (THERAPY DATES: PRIOR TO ADMISSION)
     Route: 048
  3. BIAXIN [Suspect]
     Dosage: PO (THERAPY DATES: PRIOR TO ADMISSION)
     Route: 048
  4. TRICOR [Concomitant]
  5. AVALIDE [Concomitant]
  6. ATENOLOL [Concomitant]
  7. SYNTHROID [Concomitant]

REACTIONS (1)
  - RASH PRURITIC [None]
